FAERS Safety Report 7884435-0 (Version None)
Quarter: 2011Q4

REPORT INFORMATION
  Report Type: 
  Country: None (occurrence: None)
  Receive Date: 20111102
  Receipt Date: 20110811
  Transmission Date: 20120403
  Serious: No
  Sender: FDA-Public Use
  Company Number: US-ASTRAZENECA-2011SE35731

PATIENT
  Age: 53 Year
  Sex: Male

DRUGS (8)
  1. MELATONIN [Concomitant]
  2. VANDETANIB [Suspect]
     Indication: THYROID CANCER
     Route: 048
     Dates: start: 20110530
  3. VANDETANIB [Suspect]
     Route: 048
  4. ONDANSETRON [Concomitant]
  5. VITAMIN B6 [Concomitant]
  6. CLEOCIN HYDROCHLORIDE [Concomitant]
  7. PROCHLORPERAZINE MALEATE [Concomitant]
  8. VITAMIN D [Concomitant]

REACTIONS (5)
  - EYE IRRITATION [None]
  - DIZZINESS [None]
  - DIARRHOEA [None]
  - NIGHT SWEATS [None]
  - BACK PAIN [None]
